FAERS Safety Report 21614049 (Version 1)
Quarter: 2022Q4

REPORT INFORMATION
  Report Type: Spontaneous
  Country: CZ (occurrence: None)
  Receive Date: 20221118
  Receipt Date: 20221118
  Transmission Date: 20230113
  Serious: Yes (Hospitalization)
  Sender: FDA-Public Use
  Company Number: 2022A373396

PATIENT
  Age: 41 Year
  Sex: Female

DRUGS (3)
  1. QUETIAPINE FUMARATE [Suspect]
     Active Substance: QUETIAPINE FUMARATE
     Dosage: TOTAL DOSE 250MG (10TBL)
     Route: 065
     Dates: start: 20201115, end: 20201115
  2. ACETAMINOPHEN\TRAMADOL HYDROCHLORIDE [Suspect]
     Active Substance: ACETAMINOPHEN\TRAMADOL HYDROCHLORIDE
     Dosage: 375MG TRAMADOLI HYDROCHLORIDUM 3250MG PARACETAMOL
     Route: 065
     Dates: start: 20201115, end: 20201115
  3. DIHYDROCODEINE BITARTRATE [Suspect]
     Active Substance: DIHYDROCODEINE BITARTRATE
     Dosage: TOTAL DOSE 600MG (10TBL)
     Route: 065
     Dates: start: 20201115, end: 20201115

REACTIONS (2)
  - Suicide attempt [Unknown]
  - Overdose [Unknown]

NARRATIVE: CASE EVENT DATE: 20201115
